FAERS Safety Report 14373697 (Version 1)
Quarter: 2018Q1

REPORT INFORMATION
  Report Type: Spontaneous
  Country: US (occurrence: US)
  Receive Date: 20180110
  Receipt Date: 20180110
  Transmission Date: 20180509
  Serious: No
  Sender: FDA-Public Use
  Company Number: US-TEIKOKU PHARMA USA-TPU2017-00746

PATIENT
  Sex: Male

DRUGS (2)
  1. LIDODERM [Suspect]
     Active Substance: LIDOCAINE
     Indication: PROCEDURAL PAIN
     Dosage: 1 PATCH PER DAY , APPLIED TO THE LOWER LEFT AREA OF THE BACK
     Route: 061
  2. MORPHINE SULFATE. [Concomitant]
     Active Substance: MORPHINE SULFATE
     Indication: PROCEDURAL PAIN

REACTIONS (1)
  - Staphylococcal infection [Unknown]
